FAERS Safety Report 10223590 (Version 1)
Quarter: 2014Q2

REPORT INFORMATION
  Report Type: Spontaneous
  Country: US (occurrence: US)
  Receive Date: 20140609
  Receipt Date: 20140609
  Transmission Date: 20141212
  Serious: Yes (Other)
  Sender: FDA-Public Use
  Company Number: US-BRISTOL-MYERS SQUIBB COMPANY-20936837

PATIENT
  Sex: Female

DRUGS (2)
  1. ABILIFY [Suspect]
     Route: 048
  2. ABILIFY MAINTENA INJECTION [Suspect]
     Route: 030
     Dates: start: 20140516

REACTIONS (2)
  - Psychiatric decompensation [Unknown]
  - Catatonia [Unknown]
